FAERS Safety Report 6571199-6 (Version None)
Quarter: 2010Q2

REPORT INFORMATION
  Report Type: 
  Country: None (occurrence: None)
  Receive Date: 20100129
  Receipt Date: 20100119
  Transmission Date: 20101027
  Serious: Yes (Hospitalization)
  Sender: FDA-Public Use
  Company Number: ALA_00183_2008

PATIENT
  Sex: Female
  Weight: 56.6996 kg

DRUGS (14)
  1. REGLAN [Suspect]
     Indication: GASTROOESOPHAGEAL REFLUX DISEASE
     Dosage: (10 MG QD ORAL)
     Route: 048
     Dates: start: 20000101, end: 20080813
  2. REBIF [Concomitant]
  3. NIFEDIPINE [Concomitant]
  4. NIFEDIPINE [Concomitant]
  5. CLONAZEPAM [Concomitant]
  6. PROZAC [Concomitant]
  7. DITROPAN [Concomitant]
  8. AMFETAMINE [Concomitant]
  9. TRIMETHOPRIM [Concomitant]
  10. PRILOSEC [Concomitant]
  11. ALBUTEROL [Concomitant]
  12. QVAR 40 [Concomitant]
  13. NASAREL /00456601/ [Concomitant]
  14. VALIUM /0017001/ [Concomitant]

REACTIONS (6)
  - COGWHEEL RIGIDITY [None]
  - CONCUSSION [None]
  - DYSPHAGIA [None]
  - FALL [None]
  - LUMBAR VERTEBRAL FRACTURE [None]
  - PARKINSON'S DISEASE [None]
